FAERS Safety Report 11640368 (Version 1)
Quarter: 2015Q4

REPORT INFORMATION
  Report Type: Spontaneous
  Country: US (occurrence: None)
  Receive Date: 20151016
  Receipt Date: 20151016
  Transmission Date: 20160304
  Serious: No
  Sender: FDA-Public Use
  Company Number: None

PATIENT
  Age: 14 Year
  Sex: Male
  Weight: 49.9 kg

DRUGS (1)
  1. VYVANSE [Suspect]
     Active Substance: LISDEXAMFETAMINE DIMESYLATE
     Indication: ATTENTION DEFICIT/HYPERACTIVITY DISORDER
     Dosage: 1 PILL PER DAY ONCE DAILY TAKEN BY MOUTH
     Route: 048
     Dates: start: 20150401, end: 20151014

REACTIONS (5)
  - Mania [None]
  - Therapy cessation [None]
  - Condition aggravated [None]
  - Attention deficit/hyperactivity disorder [None]
  - Abdominal pain upper [None]

NARRATIVE: CASE EVENT DATE: 20151001
